FAERS Safety Report 9732701 (Version 1)
Quarter: 2013Q4

REPORT INFORMATION
  Report Type: Spontaneous
  Country: HU (occurrence: HU)
  Receive Date: 20131205
  Receipt Date: 20131205
  Transmission Date: 20140711
  Serious: No
  Sender: FDA-Public Use
  Company Number: HU-UCBSA-105085

PATIENT
  Age: 22 Year
  Sex: Female

DRUGS (3)
  1. KEPPRA [Suspect]
     Indication: EPILEPSY
     Route: 048
     Dates: start: 200909
  2. LAMOTRIGIN [Concomitant]
     Indication: EPILEPSY
     Dates: start: 20100628
  3. CARBAMAZEPINE [Concomitant]
     Indication: EPILEPSY
     Dosage: 300MG MORNING, 600MG EVENING
     Route: 048
     Dates: start: 2002

REACTIONS (1)
  - Pregnancy [Recovered/Resolved]
